FAERS Safety Report 5591386-3 (Version None)
Quarter: 2008Q1

REPORT INFORMATION
  Report Type: 
  Country: None (occurrence: None)
  Receive Date: 20080115
  Receipt Date: 20080111
  Transmission Date: 20080703
  Serious: Yes (Hospitalization, Disabling, Other)
  Sender: FDA-Public Use
  Company Number: ES-ABBOTT-07P-144-0417232-00

PATIENT
  Sex: Female
  Weight: 83.5 kg

DRUGS (15)
  1. REDUCTIL [Suspect]
     Indication: OVERWEIGHT
     Route: 048
  2. INSULIN DETEMIR [Concomitant]
     Indication: DIABETES MELLITUS
     Route: 030
  3. INSULIN ASPART [Concomitant]
     Indication: DIABETES MELLITUS
     Dosage: SLIDING SCALE ACCORDING TO BLOOD SUGAR
     Route: 030
  4. PREDNISOLONE [Concomitant]
     Indication: POLYMYALGIA RHEUMATICA
     Route: 048
  5. AZATHIOPRINE [Concomitant]
     Indication: POLYMYALGIA RHEUMATICA
     Route: 048
  6. GABAPENTIN [Concomitant]
     Indication: PAIN
  7. GABAPENTIN [Concomitant]
     Indication: NEURALGIA
  8. CALCIUM-SANDOZ [Concomitant]
     Indication: DRUG USE FOR UNKNOWN INDICATION
     Route: 048
  9. ASCORBIC ACID [Concomitant]
     Indication: DRUG USE FOR UNKNOWN INDICATION
  10. VITAMIN B [Concomitant]
     Indication: DRUG USE FOR UNKNOWN INDICATION
  11. OMEPRAZOLE [Concomitant]
     Indication: DRUG USE FOR UNKNOWN INDICATION
  12. TORAZEMIDE [Concomitant]
     Indication: DRUG USE FOR UNKNOWN INDICATION
  13. HYDROCHLOROTHIAZIDE W/LOSARTAN [Concomitant]
     Indication: DRUG USE FOR UNKNOWN INDICATION
  14. HYDROCHLOROTHIAZIDE [Concomitant]
     Indication: DRUG USE FOR UNKNOWN INDICATION
  15. ERGOCALCIFEROL [Concomitant]
     Indication: DRUG USE FOR UNKNOWN INDICATION
     Route: 048

REACTIONS (7)
  - AGITATION [None]
  - BALANCE DISORDER [None]
  - CONFUSIONAL STATE [None]
  - DISORIENTATION [None]
  - HALLUCINATION [None]
  - INTESTINAL OBSTRUCTION [None]
  - SEROTONIN SYNDROME [None]
